FAERS Safety Report 14162243 (Version 5)
Quarter: 2018Q2

REPORT INFORMATION
  Report Type: Report from Study
  Country: MX (occurrence: MX)
  Receive Date: 20171106
  Receipt Date: 20180406
  Transmission Date: 20180711
  Serious: Yes (Life-Threatening, Hospitalization)
  Sender: FDA-Public Use
  Company Number: PHHY2017MX151710

PATIENT
  Age: 70 Year
  Sex: Male
  Weight: 79 kg

DRUGS (12)
  1. ENTRESTO [Suspect]
     Active Substance: SACUBITRIL\VALSARTAN
     Indication: HYPERTENSION
  2. EPISIL [Concomitant]
     Indication: ARRHYTHMIA
     Dosage: 1 DF (10 MG), QD
     Route: 065
  3. AMIODARONE [Concomitant]
     Active Substance: AMIODARONE
     Indication: PRODUCT USED FOR UNKNOWN INDICATION
     Dosage: 1 DF, QD
     Route: 048
     Dates: start: 201704, end: 201707
  4. ALLOPURINOL. [Concomitant]
     Active Substance: ALLOPURINOL
     Indication: PRODUCT USED FOR UNKNOWN INDICATION
     Dosage: 1 DF, QD
     Route: 048
     Dates: start: 2016, end: 201708
  5. ALDACTONE [Concomitant]
     Active Substance: SPIRONOLACTONE
     Indication: PRODUCT USED FOR UNKNOWN INDICATION
     Dosage: 1 DF, QD (STARTED 3 YARS AGO)
     Route: 065
  6. XARELTO [Concomitant]
     Active Substance: RIVAROXABAN
     Indication: POOR PERIPHERAL CIRCULATION
     Dosage: 1 DF, QD
     Route: 048
     Dates: start: 2013
  7. METOPROLOL. [Suspect]
     Active Substance: METOPROLOL
     Indication: PRODUCT USED FOR UNKNOWN INDICATION
     Dosage: 0.5 DF, QD
     Route: 048
     Dates: start: 201704
  8. FUROSEMIDE. [Concomitant]
     Active Substance: FUROSEMIDE
     Indication: POLYURIA
     Dosage: 1 DF, QD
     Route: 048
     Dates: start: 201704
  9. ENTRESTO [Suspect]
     Active Substance: SACUBITRIL\VALSARTAN
     Indication: CARDIAC DISORDER
     Dosage: 1 DF (50 MG), QD
     Route: 048
     Dates: start: 2014, end: 201708
  10. ENTRESTO [Suspect]
     Active Substance: SACUBITRIL\VALSARTAN
     Indication: CARDIAC FAILURE
     Dosage: 1 DF (50 MG), QD
     Route: 048
     Dates: start: 201709
  11. TEMERIT [Concomitant]
     Active Substance: NEBIVOLOL
     Dosage: 0.5 DF, QD
     Route: 048
     Dates: start: 2013
  12. TEMERIT [Concomitant]
     Active Substance: NEBIVOLOL
     Indication: PRODUCT USED FOR UNKNOWN INDICATION
     Dosage: UNK
     Route: 065

REACTIONS (9)
  - Blood potassium increased [Recovered/Resolved]
  - Blood pressure increased [Recovered/Resolved]
  - Body height decreased [Unknown]
  - Prescribed underdose [Recovered/Resolved]
  - Blood pressure decreased [Recovered/Resolved]
  - Varicose vein [Recovered/Resolved]
  - Drug prescribing error [Recovered/Resolved]
  - Heart rate decreased [Recovered/Resolved]
  - Blood potassium decreased [Recovered/Resolved]

NARRATIVE: CASE EVENT DATE: 2014
